FAERS Safety Report 8897903 (Version 1)
Quarter: 2012Q4

REPORT INFORMATION
  Report Type: 
  Country: US (occurrence: US)
  Receive Date: 20121108
  Receipt Date: 20121108
  Transmission Date: 20130627
  Serious: No
  Sender: FDA-Public Use
  Company Number: US-AMGEN-USASP2012024506

PATIENT
  Age: 74 Year
  Sex: Male

DRUGS (5)
  1. ENBREL [Suspect]
     Indication: PRODUCT USED FOR UNKNOWN INDICATION
     Dosage: 50 mg, qwk
  2. WARFARIN [Concomitant]
     Dosage: 10 mg, UNK
  3. METOPROLOL TARTRATE [Concomitant]
     Dosage: 100 mg, UNK
  4. DIGOXIN [Concomitant]
     Dosage: 0125 mg, UNK
  5. HYDROXYCHLOROQUINE [Concomitant]
     Dosage: 200 mg, UNK

REACTIONS (1)
  - Infection [Unknown]
